FAERS Safety Report 8420434-8 (Version None)
Quarter: 2012Q2

REPORT INFORMATION
  Report Type: 
  Country: None (occurrence: None)
  Receive Date: 20120607
  Receipt Date: 20120604
  Transmission Date: 20120825
  Serious: Yes (Hospitalization, Other)
  Sender: FDA-Public Use
  Company Number: US-BAYER-2012-056034

PATIENT
  Age: 59 Year
  Sex: Male

DRUGS (7)
  1. KOGENATE FS [Suspect]
     Dosage: CONTINUOUS INFUSIONS
     Route: 042
     Dates: start: 20111201, end: 20111201
  2. KOGENATE FS [Suspect]
     Dosage: CONTINUOUS INFUSION
     Route: 042
     Dates: start: 20120301, end: 20120301
  3. KOGENATE FS [Suspect]
     Dosage: PROPHYLAXIS FOR ONE MONTH
     Dates: start: 20120301
  4. KOGENATE FS [Suspect]
     Dosage: CONTINUOUS INFUSIONS
     Route: 042
     Dates: start: 20110201, end: 20110201
  5. KOGENATE FS [Suspect]
     Dosage: PROPHYLAXIS FOR ONE MONTH
     Dates: start: 20120301
  6. KOGENATE FS [Suspect]
     Dosage: PROPHYLAXIS
     Route: 042
     Dates: start: 20120201
  7. KOGENATE FS [Suspect]
     Dosage: CONTINUOUS INFUSION
     Dates: start: 20120501

REACTIONS (3)
  - CHEST PAIN [None]
  - HAEMATURIA [None]
  - ANTI FACTOR VIII ANTIBODY POSITIVE [None]
